FAERS Safety Report 17479957 (Version 3)
Quarter: 2020Q1

REPORT INFORMATION
  Report Type: Spontaneous
  Country: CA (occurrence: CA)
  Receive Date: 20200228
  Receipt Date: 20200327
  Transmission Date: 20200409
  Serious: Yes (Death, Life-Threatening, Hospitalization)
  Sender: FDA-Public Use
  Company Number: CA-ARRAY-2020-07421

PATIENT

DRUGS (16)
  1. OXYNEO [Concomitant]
     Active Substance: OXYCODONE
     Indication: DYSPNOEA
     Dosage: 15 MG, BID
     Route: 048
     Dates: start: 20200116
  2. FENTANYL CITRATE. [Concomitant]
     Active Substance: FENTANYL CITRATE
     Dosage: 25-50 MG, Q30 MIN PRN
     Route: 058
  3. MIDAZOLAM. [Concomitant]
     Active Substance: MIDAZOLAM
     Dosage: 1 MG, Q30 MIN
     Route: 058
     Dates: start: 20200225
  4. LIDOCAINE. [Concomitant]
     Active Substance: LIDOCAINE
     Indication: ANXIETY
  5. SALBUTAMOL [Concomitant]
     Active Substance: ALBUTEROL
     Indication: PRODUCT USED FOR UNKNOWN INDICATION
     Dosage: UNK, QID PRN
  6. LIDOCAINE. [Concomitant]
     Active Substance: LIDOCAINE
     Indication: COUGH
     Dosage: 20 MG/ML, 2 - 3 MLS, Q2 HRS PRN
  7. DECADRON [Concomitant]
     Active Substance: DEXAMETHASONE
     Indication: DYSPNOEA
     Dosage: 4 MG, BID
     Route: 048
     Dates: start: 20200122
  8. LORAZEPAM. [Concomitant]
     Active Substance: LORAZEPAM
     Indication: ANXIETY
     Dosage: 1 MG, PRN
     Route: 048
     Dates: start: 20200117
  9. CITALOPRAM [Concomitant]
     Active Substance: CITALOPRAM HYDROBROMIDE
     Indication: ANXIETY
     Dosage: 20 MG, OD
     Route: 048
     Dates: start: 20200117
  10. CLONAZEPAM. [Concomitant]
     Active Substance: CLONAZEPAM
     Indication: ANXIETY
     Dosage: 0.5 MG, TID
     Route: 048
     Dates: start: 20200118
  11. MIDAZOLAM. [Concomitant]
     Active Substance: MIDAZOLAM
     Indication: ANXIETY
     Dosage: 2 MG, Q1TR PRN, SUBLINGUAL OR SUBCUTANEOUS
     Dates: start: 20200220
  12. MIDAZOLAM. [Concomitant]
     Active Substance: MIDAZOLAM
     Indication: DYSPNOEA
     Dosage: 2 MG, Q30 MIN PRN
     Route: 058
     Dates: start: 20200225
  13. MEKTOVI [Suspect]
     Active Substance: BINIMETINIB
     Indication: METASTATIC MALIGNANT MELANOMA
     Dosage: 45 MG, BID
     Route: 048
     Dates: start: 20200122, end: 20200229
  14. FENTANYL CITRATE. [Concomitant]
     Active Substance: FENTANYL CITRATE
     Indication: DYSPNOEA
     Dosage: 50 MCG/ML, USE 0.5 ML SUBCUTANEOUS Q30 MINUTES
     Dates: start: 20200117
  15. OXYCODONE [Concomitant]
     Active Substance: OXYCODONE
     Indication: DYSPNOEA
     Dosage: 5 MG, Q2 HRS PRN
     Route: 048
     Dates: start: 20200116
  16. PREGABALIN. [Concomitant]
     Active Substance: PREGABALIN
     Indication: PAIN
     Dosage: 25 MG, BID
     Route: 048
     Dates: start: 20200117

REACTIONS (5)
  - Disease progression [Fatal]
  - Metastases to central nervous system [Fatal]
  - Off label use [Unknown]
  - Cough [Fatal]
  - Dyspnoea [Fatal]

NARRATIVE: CASE EVENT DATE: 20200122
